FAERS Safety Report 9163572 (Version 1)
Quarter: 2013Q1

REPORT INFORMATION
  Report Type: Spontaneous
  Country: FR (occurrence: FR)
  Receive Date: 20130314
  Receipt Date: 20130314
  Transmission Date: 20140127
  Serious: Yes (Hospitalization)
  Sender: FDA-Public Use
  Company Number: FR-ROCHE-1201345

PATIENT
  Age: 82 Year
  Sex: Female

DRUGS (10)
  1. LUCENTIS [Suspect]
     Indication: AGE-RELATED MACULAR DEGENERATION
     Route: 050
     Dates: start: 20110609
  2. PLAVIX [Concomitant]
     Route: 065
  3. DEBRIDAT [Concomitant]
     Route: 065
  4. CELECTOL [Concomitant]
     Route: 065
  5. COZAAR [Concomitant]
     Route: 065
  6. MOPRAL (FRANCE) [Concomitant]
     Route: 065
  7. ELISOR [Concomitant]
     Route: 065
  8. FORLAX (FRANCE) [Concomitant]
     Route: 065
  9. XYZALL [Concomitant]
     Route: 065
  10. GAVISCON (FRANCE) [Concomitant]
     Route: 065

REACTIONS (3)
  - Aphasia [Recovered/Resolved]
  - Diarrhoea haemorrhagic [Recovered/Resolved]
  - Headache [Recovered/Resolved]
